FAERS Safety Report 7270590-2 (Version None)
Quarter: 2011Q1

REPORT INFORMATION
  Report Type: 
  Country: None (occurrence: None)
  Receive Date: 20110202
  Receipt Date: 20110128
  Transmission Date: 20110831
  Serious: Yes (Death, Hospitalization)
  Sender: FDA-Public Use
  Company Number: A0788671A

PATIENT
  Age: 43 Year
  Sex: Female
  Weight: 100 kg

DRUGS (3)
  1. DIABETA [Concomitant]
     Dates: start: 19991101, end: 20030401
  2. MICRONASE [Concomitant]
     Dates: start: 19991101, end: 20050305
  3. AVANDIA [Suspect]
     Dosage: 4MG PER DAY
     Route: 065
     Dates: start: 19991101, end: 20030501

REACTIONS (4)
  - ANGINA UNSTABLE [None]
  - MYOCARDIAL INFARCTION [None]
  - PLEURAL EFFUSION [None]
  - CARDIAC FAILURE CONGESTIVE [None]
